FAERS Safety Report 5299657-5 (Version None)
Quarter: 2007Q2

REPORT INFORMATION
  Report Type: 
  Country: None (occurrence: None)
  Receive Date: 20070410
  Receipt Date: 20070330
  Transmission Date: 20071010
  Serious: Yes (Hospitalization)
  Sender: FDA-Public Use
  Company Number: 163-20785-07040089

PATIENT
  Age: 72 Year
  Sex: Male

DRUGS (6)
  1. THALOMID [Suspect]
     Indication: MULTIPLE MYELOMA
     Dosage: 100 MG, DAILY, ORAL
     Route: 048
     Dates: start: 20070108, end: 20070120
  2. VELCADE [Suspect]
     Indication: MULTIPLE MYELOMA
     Dosage: 0.8 MG, DAYS 1, 4, 8, 11
     Dates: start: 20070108, end: 20070118
  3. DEXAMETHASONE TAB [Suspect]
     Indication: MULTIPLE MYELOMA
     Dosage: 20 MG ON DAYS 1-4 AND 8-11 EVERY 28 DAYS, ORAL
     Route: 048
     Dates: start: 20050714
  4. ACYCLOVIR [Concomitant]
  5. ZANTAC [Concomitant]
  6. SENNA (SENNA) [Concomitant]

REACTIONS (3)
  - BLOOD DISORDER [None]
  - ENTEROVESICAL FISTULA [None]
  - PNEUMATURIA [None]
